FAERS Safety Report 24549192 (Version 1)
Quarter: 2024Q4

REPORT INFORMATION
  Report Type: Spontaneous
  Country: US (occurrence: None)
  Receive Date: 20241024
  Receipt Date: 20241024
  Transmission Date: 20250115
  Serious: Yes (Hospitalization)
  Sender: Public
  Company Number: None

PATIENT
  Age: 31 Year
  Sex: Female

DRUGS (2)
  1. DULOXETINE [Suspect]
     Active Substance: DULOXETINE
     Indication: Depression
     Route: 048
     Dates: start: 20240715
  2. DULOXETINE [Suspect]
     Active Substance: DULOXETINE
     Indication: Anxiety

REACTIONS (9)
  - Menstrual disorder [None]
  - Hormone level abnormal [None]
  - Breast tenderness [None]
  - Seborrhoea [None]
  - Acne [None]
  - Derealisation [None]
  - Feeling abnormal [None]
  - Feeling abnormal [None]
  - Dreamy state [None]

NARRATIVE: CASE EVENT DATE: 20241016
